FAERS Safety Report 8451630-1 (Version None)
Quarter: 2012Q2

REPORT INFORMATION
  Report Type: 
  Country: None (occurrence: None)
  Receive Date: 20120620
  Receipt Date: 20120309
  Transmission Date: 20120825
  Serious: No
  Sender: FDA-Public Use
  Company Number: US-VERTEX PHARMACEUTICALS INC.-AE-2012-003475

PATIENT
  Sex: Male
  Weight: 90.8 kg

DRUGS (5)
  1. INCIVEK [Suspect]
     Indication: HEPATITIS C
     Route: 048
     Dates: start: 20120229
  2. PEG-INTRON [Concomitant]
     Indication: HEPATITIS C
     Route: 058
     Dates: start: 20120229
  3. REBETOL [Concomitant]
     Indication: HEPATITIS C
     Route: 048
     Dates: start: 20120229
  4. RANITIDINE [Concomitant]
     Route: 048
  5. NAPROXEN (ALEVE) [Concomitant]
     Indication: PAIN
     Route: 048

REACTIONS (5)
  - PRURITUS [None]
  - PARAESTHESIA [None]
  - IRRITABILITY [None]
  - SKIN BURNING SENSATION [None]
  - ANXIETY [None]
